FAERS Safety Report 14532416 (Version 20)
Quarter: 2019Q2

REPORT INFORMATION
  Report Type: Report from Study
  Country: FR (occurrence: FR)
  Receive Date: 20180214
  Receipt Date: 20190530
  Transmission Date: 20190711
  Serious: Yes (Hospitalization, Other)
  Sender: FDA-Public Use
  Company Number: FR-TAKEDA-2018MPI001524

PATIENT
  Age: 78 Year
  Sex: Female
  Weight: 50 kg

DRUGS (13)
  1. BIPRETERAX                         /01421201/ [Concomitant]
     Active Substance: INDAPAMIDE\PERINDOPRIL ERBUMINE
     Indication: HYPERTENSION
     Dosage: UNK UNK, QD
     Route: 065
  2. BACTRIM [Suspect]
     Active Substance: SULFAMETHOXAZOLE\TRIMETHOPRIM
     Indication: PRODUCT USED FOR UNKNOWN INDICATION
     Dosage: UNK
     Route: 065
  3. REVLIMID [Suspect]
     Active Substance: LENALIDOMIDE
     Dosage: 15 MILLIGRAM, QD
     Route: 048
     Dates: start: 20180329
  4. DEXAMETHASONE. [Suspect]
     Active Substance: DEXAMETHASONE
     Indication: PLASMA CELL MYELOMA
     Dosage: 40 MG, 1/WEEK
     Route: 048
     Dates: start: 20180122
  5. ROVAMYCINE                         /00074401/ [Suspect]
     Active Substance: SPIRAMYCIN
     Indication: PRODUCT USED FOR UNKNOWN INDICATION
     Dosage: UNK
     Route: 065
     Dates: start: 20180207, end: 20180208
  6. CIPROFLOXACINE                     /00697201/ [Concomitant]
     Active Substance: CIPROFLOXACIN
     Indication: INFECTION
     Dosage: 1 G, QD
     Route: 048
     Dates: start: 20180126, end: 20180131
  7. PENTACARINAT [Concomitant]
     Active Substance: PENTAMIDINE ISETHIONATE
     Indication: PRODUCT USED FOR UNKNOWN INDICATION
     Dosage: 300 MILLIGRAM, MONTHLY
     Dates: start: 20180602
  8. ALLOPURINOL. [Suspect]
     Active Substance: ALLOPURINOL
     Indication: PRODUCT USED FOR UNKNOWN INDICATION
     Dosage: 300 MILLIGRAM, QD
     Route: 065
     Dates: start: 20171230, end: 20180221
  9. AUGMENTIN [Concomitant]
     Active Substance: AMOXICILLIN\CLAVULANATE POTASSIUM
     Indication: INFECTION
     Dosage: 1 G, TID
     Route: 048
     Dates: start: 20180126, end: 20180202
  10. DOLIPRANE [Concomitant]
     Active Substance: ACETAMINOPHEN
     Indication: PAIN
     Dosage: UNK
     Route: 065
  11. IXAZOMIB [Suspect]
     Active Substance: IXAZOMIB
     Indication: PLASMA CELL MYELOMA
     Dosage: 4 MG, 1/WEEK
     Route: 048
     Dates: start: 20180123
  12. REVLIMID [Suspect]
     Active Substance: LENALIDOMIDE
     Indication: PLASMA CELL MYELOMA
     Dosage: 25 MILLIGRAM, QD
     Route: 048
     Dates: start: 20180122
  13. VENLAFAXINE [Concomitant]
     Active Substance: VENLAFAXINE HYDROCHLORIDE
     Indication: DEPRESSION
     Dosage: UNK UNK, QD
     Route: 065

REACTIONS (37)
  - Plasma cell myeloma [Recovering/Resolving]
  - Pyrexia [Recovered/Resolved]
  - Abdominal pain lower [Unknown]
  - Hypoalbuminaemia [Recovered/Resolved]
  - Hypercreatininaemia [Recovered/Resolved]
  - Diarrhoea [Unknown]
  - Hyperthermia [Recovered/Resolved]
  - Hypocalcaemia [Recovered/Resolved]
  - White blood cell count decreased [Recovered/Resolved]
  - Bronchitis [Unknown]
  - Lividity [Unknown]
  - Nasopharyngitis [Unknown]
  - Toxic skin eruption [Recovered/Resolved]
  - Rash erythematous [Recovered/Resolved]
  - General physical health deterioration [Unknown]
  - Inflammation [Recovering/Resolving]
  - Lymphocyte count decreased [Unknown]
  - Dyspnoea [Unknown]
  - Skin fissures [Unknown]
  - Chills [Unknown]
  - Anaemia [Recovered/Resolved]
  - Infection [Recovered/Resolved]
  - Rash generalised [Recovered/Resolved]
  - Skin burning sensation [Recovered/Resolved]
  - Neutropenia [Recovered/Resolved]
  - Weight decreased [Recovered/Resolved]
  - Mucosal inflammation [Recovered/Resolved]
  - Lung infection [Recovering/Resolving]
  - Vomiting [Recovered/Resolved]
  - Fatigue [Recovered/Resolved]
  - Plantar erythema [Recovering/Resolving]
  - Gastroenteritis [Recovered/Resolved]
  - Oral discomfort [Recovered/Resolved]
  - Staphylococcal sepsis [Recovered/Resolved]
  - Renal failure [Recovering/Resolving]
  - C-reactive protein increased [Recovering/Resolving]
  - Thrombocytopenia [Unknown]

NARRATIVE: CASE EVENT DATE: 201801
